FAERS Safety Report 4293447-8 (Version None)
Quarter: 2004Q1

REPORT INFORMATION
  Report Type: 
  Country: None (occurrence: None)
  Receive Date: 20040126
  Receipt Date: 20031105
  Transmission Date: 20041129
  Serious: No
  Sender: FDA-Public Use
  Company Number: USA031151767

PATIENT
  Age: 37 Year
  Sex: Male

DRUGS (8)
  1. FORTEO [Suspect]
     Indication: OSTEOPOROSIS
     Dates: start: 20031104
  2. DILANTIN [Concomitant]
  3. ACTONEL [Concomitant]
  4. PERCOCET [Concomitant]
  5. ZANAFLEX [Concomitant]
  6. OXYCONTIN [Concomitant]
  7. MULTI-VITAMIN [Concomitant]
  8. HERBS [Concomitant]

REACTIONS (3)
  - HEADACHE [None]
  - INJECTION SITE ERYTHEMA [None]
  - INJECTION SITE HAEMORRHAGE [None]
